FAERS Safety Report 8186910-0 (Version None)
Quarter: 2012Q1

REPORT INFORMATION
  Report Type: 
  Country: None (occurrence: None)
  Receive Date: 20120306
  Receipt Date: 20120228
  Transmission Date: 20120608
  Serious: Yes (Life-Threatening, Hospitalization, Congenital Anomaly)
  Sender: FDA-Public Use
  Company Number: NL-PFIZER INC-2007002720

PATIENT
  Age: 2 Day
  Sex: Female
  Weight: 3.35 kg

DRUGS (4)
  1. LAMIVUDINE + ZIDOVUDINE [Suspect]
     Indication: HIV INFECTION
     Route: 064
  2. NELFINAVIR MESYLATE [Suspect]
     Indication: HIV INFECTION
     Route: 064
     Dates: start: 20060724
  3. LAMIVUDINE (EPIVIR HBV) [Suspect]
     Indication: PROPHYLAXIS
     Route: 042
  4. ZIDOVUDINE [Suspect]
     Indication: PROPHYLAXIS
     Route: 042

REACTIONS (2)
  - MATERNAL EXPOSURE TIMING UNSPECIFIED [None]
  - NECROTISING COLITIS [None]
